FAERS Safety Report 19235776 (Version 1)
Quarter: 2021Q2

REPORT INFORMATION
  Report Type: Spontaneous
  Country: US (occurrence: US)
  Receive Date: 20210510
  Receipt Date: 20210510
  Transmission Date: 20210717
  Serious: Yes (Hospitalization, Other)
  Sender: FDA-Public Use
  Company Number: US-SA-2021SA152089

PATIENT
  Age: 59 Year
  Sex: Female

DRUGS (12)
  1. FLUTICASONE PROPIONATE. [Concomitant]
     Active Substance: FLUTICASONE PROPIONATE
  2. LATANOPROST. [Concomitant]
     Active Substance: LATANOPROST
     Dosage: DROPS
  3. MELATONIN [Concomitant]
     Active Substance: MELATONIN
  4. ATORVASTATIN CALCIUM. [Concomitant]
     Active Substance: ATORVASTATIN CALCIUM
  5. DULOXETINE HCL [Concomitant]
     Active Substance: DULOXETINE HYDROCHLORIDE
  6. AUBAGIO [Suspect]
     Active Substance: TERIFLUNOMIDE
     Indication: MULTIPLE SCLEROSIS
     Dosage: 7 MG, QD
     Route: 048
     Dates: start: 2019
  7. ELIQUIS [Concomitant]
     Active Substance: APIXABAN
  8. LOSARTAN POTASSIUM. [Concomitant]
     Active Substance: LOSARTAN POTASSIUM
  9. TYLENOL [Concomitant]
     Active Substance: ACETAMINOPHEN
  10. VITAMINE D [Concomitant]
     Active Substance: CHOLECALCIFEROL
  11. SYMBICORT [Concomitant]
     Active Substance: BUDESONIDE\FORMOTEROL FUMARATE DIHYDRATE
     Indication: DERMATITIS ATOPIC
     Dosage: 160?4.5MCG HFA AER AD
  12. METOPROLOL SUCCINATE. [Concomitant]
     Active Substance: METOPROLOL SUCCINATE

REACTIONS (9)
  - COVID-19 [Unknown]
  - Dialysis [Unknown]
  - Renal failure [Unknown]
  - Sepsis [Unknown]
  - Weight decreased [Unknown]
  - Myocardial infarction [Unknown]
  - Loss of consciousness [Unknown]
  - Mechanical ventilation [Unknown]
  - Dyspnoea [Unknown]

NARRATIVE: CASE EVENT DATE: 202010
